FAERS Safety Report 19502671 (Version 1)
Quarter: 2021Q3

REPORT INFORMATION
  Report Type: Spontaneous
  Country: DE (occurrence: DE)
  Receive Date: 20210707
  Receipt Date: 20210707
  Transmission Date: 20211014
  Serious: Yes (Hospitalization)
  Sender: FDA-Public Use
  Company Number: DE-TEVA-2021-DE-1929825

PATIENT
  Age: 39 Year
  Sex: Female
  Weight: 92 kg

DRUGS (6)
  1. LEVOTHYROXIN?NATRIUM [Concomitant]
     Active Substance: LEVOTHYROXINE SODIUM
     Dosage: 25 MICROGRAM DAILY;  1?0?0?0
     Route: 048
  2. CYCLOPHOSPHAMID [Suspect]
     Active Substance: CYCLOPHOSPHAMIDE
     Dosage: ACCORDING TO THE SCHEME
     Route: 042
  3. JODID 0.2 MG [Concomitant]
     Dosage: 200 MICROGRAM DAILY; 1?0?0?0
     Route: 048
  4. FUNGIZID?RATIOPHARM [Concomitant]
     Route: 067
  5. EPIRUBICIN [Suspect]
     Active Substance: EPIRUBICIN
     Dosage: ACCORDING TO THE SCHEME
     Route: 042
  6. PANTOPRAZOL [Concomitant]
     Active Substance: PANTOPRAZOLE SODIUM
     Dosage: 80 MILLIGRAM DAILY; 1?0?0?1
     Route: 048

REACTIONS (2)
  - Dyspnoea [Recovering/Resolving]
  - Musculoskeletal pain [Recovering/Resolving]
